FAERS Safety Report 6805268-X (Version None)
Quarter: 2010Q2

REPORT INFORMATION
  Report Type: 
  Country: None (occurrence: None)
  Receive Date: 20100628
  Receipt Date: 20071010
  Transmission Date: 20101027
  Serious: No
  Sender: FDA-Public Use
  Company Number: US-PFIZER INC-2007084360

PATIENT
  Age: 84 Year
  Sex: Female
  Weight: 81.818 kg

DRUGS (7)
  1. XALATAN [Suspect]
     Indication: INTRAOCULAR PRESSURE TEST ABNORMAL
     Dates: start: 20070101, end: 20070901
  2. XALATAN [Suspect]
     Indication: VISUAL ACUITY REDUCED
  3. DRUG, UNSPECIFIED [Concomitant]
     Indication: THYROID DISORDER
  4. ANTIHYPERTENSIVES [Concomitant]
     Indication: HYPERTENSION
  5. DRUG, UNSPECIFIED [Concomitant]
  6. ALLERGY MEDICATION [Concomitant]
     Indication: HYPERSENSITIVITY
  7. CARDIAC THERAPY [Concomitant]
     Indication: CARDIAC DISORDER

REACTIONS (1)
  - EYE BURNS [None]
